FAERS Safety Report 10005572 (Version 3)
Quarter: 2014Q2

REPORT INFORMATION
  Report Type: Report from Study
  Country: GB (occurrence: GB)
  Receive Date: 20140313
  Receipt Date: 20140602
  Transmission Date: 20141212
  Serious: Yes (Hospitalization, Other)
  Sender: FDA-Public Use
  Company Number: GB-ROCHE-1264423

PATIENT
  Age: 82 Year
  Sex: Male

DRUGS (7)
  1. RANIBIZUMAB [Suspect]
     Route: 050
     Dates: start: 20130105
  2. WARFARIN [Concomitant]
     Route: 065
     Dates: start: 20120910, end: 20130123
  3. CODEINE PHOSPHATE [Concomitant]
     Route: 065
     Dates: start: 20130122, end: 20130125
  4. PARACETAMOL [Concomitant]
     Route: 065
     Dates: start: 20130122, end: 20130125
  5. IBUPROFEN [Concomitant]
     Route: 065
     Dates: start: 20130122, end: 20130125
  6. PRESERVISION AREDS [Concomitant]
     Route: 065
     Dates: start: 201208
  7. RANIBIZUMAB [Suspect]
     Indication: PRODUCT USED FOR UNKNOWN INDICATION
     Route: 050
     Dates: start: 20110730

REACTIONS (3)
  - Urinary retention [Recovered/Resolved]
  - Acquired phimosis [Unknown]
  - Deep vein thrombosis [Unknown]
